FAERS Safety Report 20094398 (Version 1)
Quarter: 2021Q4

REPORT INFORMATION
  Report Type: Spontaneous
  Country: GB (occurrence: GB)
  Receive Date: 20211122
  Receipt Date: 20211122
  Transmission Date: 20220303
  Serious: Yes (Disabling, Other)
  Sender: FDA-Public Use
  Company Number: None

PATIENT
  Age: 35 Year
  Sex: Female

DRUGS (1)
  1. NAPROXEN [Suspect]
     Active Substance: NAPROXEN
     Indication: Ill-defined disorder
     Dosage: 2X500MG X28 DAYS
     Route: 048
     Dates: start: 20200622, end: 20200721

REACTIONS (5)
  - Medication error [Unknown]
  - Gastrointestinal inflammation [Not Recovered/Not Resolved]
  - Joint swelling [Unknown]
  - Mood swings [Recovered/Resolved with Sequelae]
  - Joint swelling [Unknown]

NARRATIVE: CASE EVENT DATE: 20200701
